FAERS Safety Report 6386260-9 (Version None)
Quarter: 2009Q4

REPORT INFORMATION
  Report Type: 
  Country: None (occurrence: None)
  Receive Date: 20091002
  Receipt Date: 20090825
  Transmission Date: 20100525
  Serious: No
  Sender: FDA-Public Use
  Company Number: US-BAYER-200914000BCC

PATIENT
  Sex: Female

DRUGS (3)
  1. ALEVE [Suspect]
     Indication: OSTEOPOROSIS
     Dosage: TOOK ONE OR TWO ALEVE TABLETS ONCE OR TWICE DAILY OFF AND ON
     Route: 048
     Dates: start: 20090601
  2. TYLENOL (CAPLET) [Concomitant]
     Route: 065
  3. OSCAL [Concomitant]
     Dosage: TOOK IT WHENEVER SHE FELT LIKE IT, NOT AS SHE SAID SHE SHOULD
     Route: 065

REACTIONS (1)
  - CONTUSION [None]
